FAERS Safety Report 7124714-8 (Version None)
Quarter: 2010Q4

REPORT INFORMATION
  Report Type: 
  Country: None (occurrence: None)
  Receive Date: 20101122
  Receipt Date: 20101122
  Transmission Date: 20110411
  Serious: Yes (Life-Threatening, Hospitalization)
  Sender: FDA-Public Use
  Company Number: None

PATIENT
  Sex: Male
  Weight: 112.3 kg

DRUGS (1)
  1. PRASUGREL 10MG LILLY [Suspect]
     Indication: ISCHAEMIC HEART DISEASE PROPHYLAXIS
     Dosage: 10MG DAILY PO
     Route: 048
     Dates: start: 20101113, end: 20101113

REACTIONS (5)
  - CHEST PAIN [None]
  - PETECHIAE [None]
  - PULMONARY OEDEMA [None]
  - PYREXIA [None]
  - TROPONIN INCREASED [None]
